FAERS Safety Report 9315355 (Version 1)
Quarter: 2013Q2

REPORT INFORMATION
  Report Type: Spontaneous
  Country: US (occurrence: US)
  Receive Date: 20130529
  Receipt Date: 20130529
  Transmission Date: 20140414
  Serious: Yes (Other)
  Sender: FDA-Public Use
  Company Number: US-INCYTE CORPORATION-2013IN001054

PATIENT
  Age: 66 Year
  Sex: Male

DRUGS (11)
  1. JAKAFI [Suspect]
     Dosage: 20 MG, BID
     Route: 048
     Dates: start: 201211
  2. XALATAN [Concomitant]
  3. TERAZOSIN [Concomitant]
  4. ASPIRIN [Concomitant]
  5. CENTRUM [Concomitant]
  6. FLONASE [Concomitant]
  7. TRAZODONE [Concomitant]
  8. B COMPLEX [Concomitant]
  9. SIMVASTATIN [Concomitant]
  10. METOPROLOL [Concomitant]
  11. CETIRIZINE [Concomitant]

REACTIONS (1)
  - Convulsion [Unknown]
